FAERS Safety Report 5733803-1 (Version None)
Quarter: 2008Q2

REPORT INFORMATION
  Report Type: 
  Country: None (occurrence: None)
  Receive Date: 20080509
  Receipt Date: 20080430
  Transmission Date: 20081010
  Serious: Yes (Congenital Anomaly, Other)
  Sender: FDA-Public Use
  Company Number: GB-ABBOTT-08P-167-0449790-00

PATIENT
  Sex: Male
  Weight: 3.21 kg

DRUGS (1)
  1. VALPROATE SODIUM [Suspect]
     Indication: DRUG EXPOSURE DURING PREGNANCY
     Route: 064

REACTIONS (33)
  - ADENOIDAL HYPERTROPHY [None]
  - ANAEMIA [None]
  - ATRIAL SEPTAL DEFECT [None]
  - CARDIAC MURMUR [None]
  - CONGENITAL HAIR DISORDER [None]
  - CONGENITAL NOSE MALFORMATION [None]
  - COORDINATION ABNORMAL [None]
  - DEPRESSED LEVEL OF CONSCIOUSNESS [None]
  - DRUG EXPOSURE DURING PREGNANCY [None]
  - DYSMORPHISM [None]
  - DYSPNOEA [None]
  - FINE MOTOR DELAY [None]
  - FOETAL ANTICONVULSANT SYNDROME [None]
  - FOETAL DISTRESS SYNDROME [None]
  - FOETAL-MATERNAL HAEMORRHAGE [None]
  - HEART DISEASE CONGENITAL [None]
  - HYPERTELORISM OF ORBIT [None]
  - HYPOKINESIA [None]
  - HYPOSPADIAS [None]
  - HYPOTONIA [None]
  - ILLITERACY [None]
  - LIGAMENT LAXITY [None]
  - LIP DISORDER [None]
  - MOUTH BREATHING [None]
  - NASAL CONGESTION [None]
  - OTITIS MEDIA [None]
  - PATENT DUCTUS ARTERIOSUS [None]
  - PSYCHOMOTOR SKILLS IMPAIRED [None]
  - RESPIRATORY DISORDER [None]
  - SLEEP DISORDER [None]
  - SPEECH DISORDER [None]
  - SPEECH DISORDER DEVELOPMENTAL [None]
  - UPPER AIRWAY OBSTRUCTION [None]
